FAERS Safety Report 7157830-5 (Version None)
Quarter: 2010Q4

REPORT INFORMATION
  Report Type: 
  Country: None (occurrence: None)
  Receive Date: 20101214
  Receipt Date: 20101206
  Transmission Date: 20110411
  Serious: Yes (Hospitalization)
  Sender: FDA-Public Use
  Company Number: FR-BRISTOL-MYERS SQUIBB COMPANY-15426802

PATIENT
  Age: 50 Year
  Sex: Male

DRUGS (7)
  1. REYATAZ [Suspect]
     Indication: ACQUIRED IMMUNODEFICIENCY SYNDROME
     Route: 048
     Dates: start: 20100915, end: 20100923
  2. KIVEXA [Suspect]
     Indication: ACQUIRED IMMUNODEFICIENCY SYNDROME
     Dosage: 1 INTAKE DAILY
     Route: 048
     Dates: start: 20100915, end: 20100923
  3. NORVIR [Suspect]
     Indication: ACQUIRED IMMUNODEFICIENCY SYNDROME
     Dosage: ONE CAPSULE DAILY
     Route: 048
     Dates: start: 20100915, end: 20100923
  4. ANSATIPINE [Suspect]
     Indication: ACQUIRED IMMUNODEFICIENCY SYNDROME
     Dosage: 150MG ONE CAPSULE DAILY
     Route: 048
     Dates: start: 20100824, end: 20100923
  5. PIRILENE [Suspect]
     Indication: ACQUIRED IMMUNODEFICIENCY SYNDROME
     Dosage: 500MG 4 TABLETS IN THE MORNING
     Route: 048
     Dates: start: 20100824, end: 20100923
  6. MYAMBUTOL [Concomitant]
     Indication: TUBERCULOSIS
     Dosage: 3 TABLETS IN THE MORNING. RECENT INTRODUCTION OF ANTITUBERCULOSIS TREATMENT ON 24-AUG-2010.
  7. RIMIFON [Concomitant]
     Indication: TUBERCULOSIS
     Dosage: 2 TABLETS IN THE MORNING. RECENT INTRODUCTION OF ANTITUBERCULOSIS TREATMENT ON 24-AUG-2010.

REACTIONS (2)
  - ANGIOEDEMA [None]
  - URTICARIA [None]
